FAERS Safety Report 11586159 (Version 1)
Quarter: 2015Q3

REPORT INFORMATION
  Report Type: Spontaneous
  Country: US (occurrence: US)
  Receive Date: 20150916
  Receipt Date: 20150916
  Transmission Date: 20151125
  Serious: No
  Sender: FDA-Public Use
  Company Number: US-ELI_LILLY_AND_COMPANY-US200803005000

PATIENT
  Sex: Female

DRUGS (4)
  1. BABY ASPIRIN [Concomitant]
     Active Substance: ASPIRIN
  2. FORTEO [Suspect]
     Active Substance: TERIPARATIDE
     Dosage: UNK, UNK
     Dates: start: 200801, end: 200802
  3. FORTEO [Suspect]
     Active Substance: TERIPARATIDE
     Dosage: UNK, UNK
     Dates: start: 200803
  4. XANAX [Concomitant]
     Active Substance: ALPRAZOLAM
     Dosage: 0.125 MG, UNK
     Dates: start: 2008

REACTIONS (13)
  - Chromaturia [Recovering/Resolving]
  - Dizziness [Not Recovered/Not Resolved]
  - Sensory disturbance [Recovering/Resolving]
  - Sleep disorder [Recovered/Resolved]
  - Feeling abnormal [Recovered/Resolved]
  - Heart rate increased [Recovered/Resolved]
  - Injection site pain [Recovering/Resolving]
  - Fatigue [Recovered/Resolved]
  - Mood altered [Recovered/Resolved]
  - Dysgeusia [Recovered/Resolved]
  - Pain in extremity [Recovering/Resolving]
  - Vertigo [Recovered/Resolved]
  - Exercise tolerance decreased [Not Recovered/Not Resolved]

NARRATIVE: CASE EVENT DATE: 2008
